FAERS Safety Report 6384691-4 (Version None)
Quarter: 2009Q3

REPORT INFORMATION
  Report Type: 
  Country: None (occurrence: None)
  Receive Date: 20090930
  Receipt Date: 20090514
  Transmission Date: 20100115
  Serious: Yes (Hospitalization)
  Sender: FDA-Public Use
  Company Number: ACO_00551_2009

PATIENT
  Sex: Female

DRUGS (5)
  1. ZANAFLEX [Suspect]
     Indication: DYSTONIA
     Dosage: 6 MG AT DINNER AND TWO 6MG AT BEDTIME ORAL
     Route: 048
  2. ZANAFLEX [Suspect]
     Indication: FIBROMYALGIA
     Dosage: 6 MG AT DINNER AND TWO 6MG AT BEDTIME ORAL
     Route: 048
  3. ZANAFLEX [Suspect]
     Indication: MYOFASCIAL PAIN SYNDROME
     Dosage: 6 MG AT DINNER AND TWO 6MG AT BEDTIME ORAL
     Route: 048
  4. ZANAFLEX [Suspect]
     Indication: FIBROMYALGIA
     Dosage: DF ORAL
     Route: 048
     Dates: start: 20090430
  5. ZANAFLEX [Suspect]
     Indication: MYOFASCIAL PAIN SYNDROME
     Dosage: DF ORAL
     Route: 048
     Dates: start: 20090430

REACTIONS (3)
  - HYPOTENSION [None]
  - OFF LABEL USE [None]
  - SOMNOLENCE [None]
